FAERS Safety Report 6158516-6 (Version None)
Quarter: 2009Q2

REPORT INFORMATION
  Report Type: 
  Country: None (occurrence: None)
  Receive Date: 20090417
  Receipt Date: 20090408
  Transmission Date: 20091009
  Serious: Yes (Other)
  Sender: FDA-Public Use
  Company Number: PHHY2009IE11723

PATIENT
  Sex: Female
  Weight: 60 kg

DRUGS (9)
  1. RASILEZ [Suspect]
     Indication: HYPERTENSION
     Dosage: 150 MG, DAILY
     Route: 048
     Dates: start: 20080901, end: 20090204
  2. ADALAT [Concomitant]
  3. DONA [Concomitant]
     Dosage: UNK
  4. CALCICHEW D3 [Concomitant]
     Dosage: ONE A DAY
  5. NSAID'S [Concomitant]
  6. BURINEX [Concomitant]
  7. ATECOR [Concomitant]
  8. FOSAMAX [Concomitant]
     Dosage: 1 WEEKLY
  9. PRAVASTATIN [Concomitant]

REACTIONS (2)
  - BLOOD UREA INCREASED [None]
  - RENAL IMPAIRMENT [None]
